FAERS Safety Report 9526654 (Version 1)
Quarter: 2013Q3

REPORT INFORMATION
  Report Type: Spontaneous
  Country: JP (occurrence: JP)
  Receive Date: 20130916
  Receipt Date: 20130916
  Transmission Date: 20140515
  Serious: Yes (Hospitalization, Other)
  Sender: FDA-Public Use
  Company Number: JP-TEVA-431236ISR

PATIENT
  Age: 63 Year
  Sex: Male
  Weight: 71 kg

DRUGS (6)
  1. TRISENOX [Suspect]
     Indication: ACUTE PROMYELOCYTIC LEUKAEMIA
     Dosage: 10 MG/M2 DAILY;
     Route: 042
     Dates: start: 20130219, end: 20130416
  2. CRESTOR [Concomitant]
  3. JANUVIA [Concomitant]
  4. NEXIUM [Concomitant]
  5. METGLUCO [Concomitant]
  6. SLOW-K [Concomitant]

REACTIONS (2)
  - Sensory disturbance [Recovered/Resolved]
  - Erythema [Recovered/Resolved]
